FAERS Safety Report 9841815 (Version 1)
Quarter: 2013Q4

REPORT INFORMATION
  Report Type: Spontaneous
  Country: US (occurrence: None)
  Receive Date: 20131219
  Receipt Date: 20131219
  Transmission Date: 20140711
  Serious: Yes (Other)
  Sender: FDA-Public Use
  Company Number: 163-20785-12121426

PATIENT
  Age: 59 Year
  Sex: Male

DRUGS (3)
  1. THALOMID [Suspect]
     Indication: PLASMA CELL MYELOMA
     Dosage: 1 IN 1 D
     Route: 048
     Dates: start: 201012, end: 201101
  2. BORTEZOMIB [Concomitant]
  3. DEXAMETHASONE [Concomitant]

REACTIONS (1)
  - Pulmonary embolism [None]
